FAERS Safety Report 18760862 (Version 2)
Quarter: 2021Q1

REPORT INFORMATION
  Report Type: Spontaneous
  Country: US (occurrence: US)
  Receive Date: 20210119
  Receipt Date: 20210318
  Transmission Date: 20210419
  Serious: Yes (Other)
  Sender: FDA-Public Use
  Company Number: US-PFIZER INC-2021030679

PATIENT
  Age: 94 Year
  Sex: Female

DRUGS (2)
  1. AMLODIPINE BESILATE [Suspect]
     Active Substance: AMLODIPINE BESYLATE
     Dosage: 5 G
  2. AMLODIPINE BESILATE [Suspect]
     Active Substance: AMLODIPINE BESYLATE
     Dosage: 2.5 G

REACTIONS (14)
  - Drug ineffective [Unknown]
  - Wrong technique in product usage process [Unknown]
  - Tremor [Unknown]
  - Aphonia [Unknown]
  - Weight decreased [Unknown]
  - Hypoacusis [Unknown]
  - Nervousness [Unknown]
  - Off label use [Unknown]
  - Decreased appetite [Unknown]
  - Insomnia [Unknown]
  - Deafness [Unknown]
  - Hypoaesthesia [Unknown]
  - Abdominal pain upper [Unknown]
  - Muscle spasms [Unknown]
